FAERS Safety Report 8367983-9 (Version None)
Quarter: 2012Q2

REPORT INFORMATION
  Report Type: 
  Country: None (occurrence: None)
  Receive Date: 20120517
  Receipt Date: 20120507
  Transmission Date: 20120825
  Serious: Yes (Hospitalization, Other)
  Sender: FDA-Public Use
  Company Number: US-JNJFOC-20120508299

PATIENT
  Sex: Female
  Weight: 113.4 kg

DRUGS (4)
  1. STELARA [Suspect]
     Indication: PSORIASIS
     Route: 058
     Dates: start: 20110301, end: 20110401
  2. SYNTHROID [Concomitant]
     Indication: HYPOTHYROIDISM
     Dates: start: 19990101
  3. STELARA [Suspect]
     Route: 058
     Dates: start: 20111101
  4. TOPAMAX [Suspect]
     Indication: MIGRAINE
     Route: 048
     Dates: start: 20090101

REACTIONS (3)
  - ADVERSE EVENT [None]
  - HERPES ZOSTER [None]
  - ABDOMINAL PAIN [None]
